FAERS Safety Report 23001807 (Version 5)
Quarter: 2024Q1

REPORT INFORMATION
  Report Type: Spontaneous
  Country: JP (occurrence: None)
  Receive Date: 20230928
  Receipt Date: 20240116
  Transmission Date: 20240410
  Serious: Yes (Death)
  Sender: FDA-Public Use
  Company Number: 2023A219544

PATIENT
  Age: 85 Year
  Sex: Male
  Weight: 60 kg

DRUGS (3)
  1. ONDEXXYA [Suspect]
     Active Substance: ANDEXANET ALFA
     Indication: Cerebellar haemorrhage
     Dosage: 880.0MG UNKNOWN
     Route: 042
     Dates: start: 20230416, end: 20230416
  2. ELIQUIS [Suspect]
     Active Substance: APIXABAN
     Indication: Atrial fibrillation
     Route: 048
     Dates: end: 20230331
  3. ELIQUIS [Suspect]
     Active Substance: APIXABAN
     Indication: Atrial fibrillation
     Route: 048
     Dates: start: 20230406

REACTIONS (1)
  - Cerebellar haemorrhage [Fatal]

NARRATIVE: CASE EVENT DATE: 20230423
